FAERS Safety Report 13658812 (Version 1)
Quarter: 2017Q2

REPORT INFORMATION
  Report Type: Report from Study
  Country: US (occurrence: US)
  Receive Date: 20170616
  Receipt Date: 20170616
  Transmission Date: 20170830
  Serious: Yes (Death, Other)
  Sender: FDA-Public Use
  Company Number: US-UCBSA-2017023437

PATIENT
  Age: 0 Day
  Sex: Male

DRUGS (1)
  1. LEVETIRACETAM. [Suspect]
     Active Substance: LEVETIRACETAM
     Indication: EPILEPSY
     Dosage: UNK
     Route: 064
     Dates: end: 20130904

REACTIONS (3)
  - Congenital anomaly [Unknown]
  - Foetal exposure during pregnancy [Unknown]
  - Death neonatal [Fatal]

NARRATIVE: CASE EVENT DATE: 20130904
